FAERS Safety Report 16053916 (Version 3)
Quarter: 2020Q2

REPORT INFORMATION
  Report Type: Report from Study
  Country: NL (occurrence: NL)
  Receive Date: 20190308
  Receipt Date: 20200501
  Transmission Date: 20200713
  Serious: Yes (Other)
  Sender: FDA-Public Use
  Company Number: NL-MYLANLABS-2019M1021626

PATIENT
  Age: 61 Year
  Sex: Male
  Weight: 78.7 kg

DRUGS (5)
  1. FLUCLOXACILLINE                    /00239101/ [Concomitant]
     Active Substance: FLUCLOXACILLIN
     Dosage: 1500 MILLIGRAM DAILY;
     Route: 065
  2. THIOSIX [Suspect]
     Active Substance: THIOGUANINE ANHYDROUS
     Indication: INFLAMMATORY BOWEL DISEASE
     Dosage: 2.5 MILLIGRAM, QD
     Route: 065
     Dates: start: 20170915
  3. EMOVATE                            /00485702/ [Concomitant]
     Active Substance: CLOBETASONE BUTYRATE
     Dosage: 2 DOSAGE FORM, QD
     Route: 065
  4. AZATHIOPRINE. [Suspect]
     Active Substance: AZATHIOPRINE
     Indication: PRODUCT USED FOR UNKNOWN INDICATION
     Dosage: UNK
     Route: 065
  5. OMEPRAZOL                          /00661201/ [Concomitant]
     Active Substance: OMEPRAZOLE
     Dosage: 40 MILLIGRAM DAILY;
     Route: 065

REACTIONS (2)
  - Skin disorder [Recovering/Resolving]
  - Skin cancer [Not Recovered/Not Resolved]

NARRATIVE: CASE EVENT DATE: 20171010
